FAERS Safety Report 19226077 (Version 5)
Quarter: 2021Q4

REPORT INFORMATION
  Report Type: Spontaneous
  Country: GB (occurrence: GB)
  Receive Date: 20210506
  Receipt Date: 20211007
  Transmission Date: 20220304
  Serious: Yes (Other)
  Sender: FDA-Public Use
  Company Number: None

PATIENT
  Sex: Female

DRUGS (2)
  1. BARIUM SULFATE [Suspect]
     Active Substance: BARIUM SULFATE
     Dosage: UNK; 1 DAY
     Route: 065
  2. ASTRAZENECA COVID-19 VACCINE [Suspect]
     Active Substance: AZD-1222
     Dosage: DOSE 1
     Route: 065
     Dates: start: 20210205

REACTIONS (9)
  - Dyspnoea [Recovering/Resolving]
  - Palpitations [Recovering/Resolving]
  - Swelling [Unknown]
  - Cough [Recovering/Resolving]
  - Pain in extremity [Unknown]
  - Rash [Unknown]
  - Fatigue [Unknown]
  - Dyspnoea [Unknown]
  - Palpitations [Unknown]

NARRATIVE: CASE EVENT DATE: 20210205
